FAERS Safety Report 4649839-8 (Version None)
Quarter: 2005Q2

REPORT INFORMATION
  Report Type: 
  Country: None (occurrence: None)
  Receive Date: 20050428
  Receipt Date: 20050418
  Transmission Date: 20051028
  Serious: Yes (Other)
  Sender: FDA-Public Use
  Company Number: 213591

PATIENT
  Sex: Female

DRUGS (2)
  1. MABTHERA (RITUXIMAB) CONC FOR SOLUTION FOR INFUSION [Suspect]
     Dosage: SEE IMAGE
     Route: 042
     Dates: start: 19981201
  2. MABTHERA (RITUXIMAB) CONC FOR SOLUTION FOR INFUSION [Suspect]
     Dosage: SEE IMAGE
     Route: 042
     Dates: start: 20050418

REACTIONS (2)
  - CYST [None]
  - LOCAL SWELLING [None]
